FAERS Safety Report 9332730 (Version 1)
Quarter: 2013Q2

REPORT INFORMATION
  Report Type: Spontaneous
  Country: US (occurrence: US)
  Receive Date: 20130606
  Receipt Date: 20130606
  Transmission Date: 20140414
  Serious: No
  Sender: FDA-Public Use
  Company Number: US-PFIZER INC-2013169321

PATIENT
  Age: 51 Year
  Sex: Female
  Weight: 88.44 kg

DRUGS (1)
  1. PROTONIX [Suspect]
     Indication: GASTROOESOPHAGEAL REFLUX DISEASE
     Dosage: 40 MG, 1X/DAY
     Route: 048
     Dates: start: 201203

REACTIONS (4)
  - Chronic obstructive pulmonary disease [Unknown]
  - Intervertebral disc displacement [Unknown]
  - Malaise [Unknown]
  - Dysphagia [Unknown]
